FAERS Safety Report 5154729-0 (Version None)
Quarter: 2006Q4

REPORT INFORMATION
  Report Type: 
  Country: None (occurrence: None)
  Receive Date: 20061115
  Receipt Date: 20061115
  Transmission Date: 20070319
  Serious: Yes (Hospitalization)
  Sender: FDA-Public Use
  Company Number: None

PATIENT
  Sex: Female
  Weight: 72.6 kg

DRUGS (2)
  1. CARBOPLATIN [Suspect]
     Dosage: 1104 MG
  2. TAXOL [Suspect]
     Dosage: 502.5 MG

REACTIONS (9)
  - ASTHENIA [None]
  - FAECES DISCOLOURED [None]
  - FATIGUE [None]
  - GASTROINTESTINAL MUCOSAL DISORDER [None]
  - HAEMATEMESIS [None]
  - HYPOTENSION [None]
  - MELAENA [None]
  - SMALL INTESTINAL HAEMORRHAGE [None]
  - TROPONIN INCREASED [None]
